FAERS Safety Report 4732914-7 (Version None)
Quarter: 2005Q3

REPORT INFORMATION
  Report Type: 
  Country: None (occurrence: None)
  Receive Date: 20050803
  Receipt Date: 20050516
  Transmission Date: 20060218
  Serious: No
  Sender: FDA-Public Use
  Company Number: US-GLAXOSMITHKLINE-A0558819A

PATIENT
  Age: 48 Year
  Sex: Female

DRUGS (2)
  1. AVANDAMET [Suspect]
     Dosage: 1TAB TWICE PER DAY
     Route: 048
     Dates: start: 20050301
  2. BLOOD PRESSURE MEDICATION [Concomitant]

REACTIONS (10)
  - ASTHENIA [None]
  - BEDRIDDEN [None]
  - DECREASED APPETITE [None]
  - DIZZINESS [None]
  - DYSPEPSIA [None]
  - IMPAIRED DRIVING ABILITY [None]
  - INFLUENZA LIKE ILLNESS [None]
  - LETHARGY [None]
  - SOMNOLENCE [None]
  - VOMITING [None]
